FAERS Safety Report 23183926 (Version 2)
Quarter: 2024Q1

REPORT INFORMATION
  Report Type: Other
  Country: IN (occurrence: None)
  Receive Date: 20231114
  Receipt Date: 20240207
  Transmission Date: 20240410
  Serious: Yes (Death, Other)
  Sender: FDA-Public Use
  Company Number: IN-ROCHE-3455428

PATIENT
  Age: 56 Year
  Sex: Male

DRUGS (1)
  1. TECENTRIQ [Suspect]
     Active Substance: ATEZOLIZUMAB
     Indication: Hepatocellular carcinoma
     Route: 041
     Dates: start: 20230513

REACTIONS (5)
  - Hepatic encephalopathy [Unknown]
  - Hepatic failure [Unknown]
  - Off label use [Unknown]
  - Loss of consciousness [Fatal]
  - Fall [Fatal]

NARRATIVE: CASE EVENT DATE: 20240131
